FAERS Safety Report 5588864-X (Version None)
Quarter: 2008Q1

REPORT INFORMATION
  Report Type: 
  Country: None (occurrence: None)
  Receive Date: 20080111
  Receipt Date: 20080103
  Transmission Date: 20080703
  Serious: Yes (Other)
  Sender: FDA-Public Use
  Company Number: GB-RANBAXY-2008RR-12372

PATIENT

DRUGS (4)
  1. LISINOPRIL 2.5MG TABLETS [Suspect]
     Indication: HYPERTENSION
     Dosage: 2.5 MG, UNK
     Route: 048
     Dates: start: 20070126, end: 20070226
  2. CO-TENIDONE [Concomitant]
     Indication: HYPERTENSION
  3. METROGEL [Concomitant]
     Indication: ROSACEA
  4. OMEPRAZOLE [Concomitant]
     Indication: REFLUX OESOPHAGITIS
     Dosage: UNK

REACTIONS (2)
  - COLITIS MICROSCOPIC [None]
  - DIARRHOEA [None]
